FAERS Safety Report 16113817 (Version 3)
Quarter: 2019Q2

REPORT INFORMATION
  Report Type: Report from Study
  Country: ZA (occurrence: ZA)
  Receive Date: 20190325
  Receipt Date: 20190614
  Transmission Date: 20190711
  Serious: Yes (Life-Threatening, Hospitalization)
  Sender: FDA-Public Use
  Company Number: ZA-SA-2019SA053376

PATIENT
  Age: 60 Year
  Sex: Female

DRUGS (3)
  1. TOUJEO [Suspect]
     Active Substance: INSULIN GLARGINE
     Dosage: 30 U, HS
     Dates: start: 20190319
  2. OPTISULIN (INSULIN GLARGINE) [Suspect]
     Active Substance: INSULIN GLARGINE
     Dosage: 18 U, HS (BT)
     Dates: start: 20190112
  3. INSULIN GLULISINE [Suspect]
     Active Substance: INSULIN GLULISINE

REACTIONS (7)
  - Glycosylated haemoglobin increased [Unknown]
  - Malaise [Not Recovered/Not Resolved]
  - Ill-defined disorder [Not Recovered/Not Resolved]
  - Dizziness [Not Recovered/Not Resolved]
  - Peripheral swelling [Not Recovered/Not Resolved]
  - Eye swelling [Not Recovered/Not Resolved]
  - Pneumonia [Recovered/Resolved with Sequelae]

NARRATIVE: CASE EVENT DATE: 20190520
